FAERS Safety Report 10113613 (Version 2)
Quarter: 2015Q1

REPORT INFORMATION
  Report Type: Other
  Country: US (occurrence: US)
  Receive Date: 20140425
  Receipt Date: 20150210
  Transmission Date: 20150720
  Serious: Yes (Hospitalization, Other)
  Sender: FDA-Public Use
  Company Number: US-GSKPPD-2014GSK013705

PATIENT
  Age: 52 Year
  Sex: Male

DRUGS (8)
  1. NORVASC [Concomitant]
     Active Substance: AMLODIPINE BESYLATE
  2. LASIX [Concomitant]
     Active Substance: FUROSEMIDE
  3. AVANDIA [Suspect]
     Active Substance: ROSIGLITAZONE MALEATE
     Indication: DIABETES MELLITUS
     Route: 048
  4. PLAVIX [Concomitant]
     Active Substance: CLOPIDOGREL BISULFATE
  5. ZOCOR [Concomitant]
     Active Substance: SIMVASTATIN
  6. BABY ASPIRIN [Concomitant]
     Active Substance: ASPIRIN
  7. TRICOR [Concomitant]
     Active Substance: FENOFIBRATE
  8. TENORMIN [Concomitant]
     Active Substance: ATENOLOL

REACTIONS (3)
  - Myocardial infarction [Unknown]
  - Hypertension [Unknown]
  - Cerebrovascular accident [Unknown]

NARRATIVE: CASE EVENT DATE: 20040501
